FAERS Safety Report 25184042 (Version 2)
Quarter: 2025Q2

REPORT INFORMATION
  Report Type: Report from Study
  Country: RU (occurrence: RU)
  Receive Date: 20250410
  Receipt Date: 20250424
  Transmission Date: 20250717
  Serious: Yes (Other)
  Sender: PFIZER
  Company Number: RU-BRISTOL-MYERS SQUIBB COMPANY-2025-003777

PATIENT
  Sex: Female

DRUGS (5)
  1. CYTARABINE [Suspect]
     Active Substance: CYTARABINE
     Indication: Primary mediastinal large B-cell lymphoma
  2. NIVOLUMAB [Suspect]
     Active Substance: NIVOLUMAB
     Indication: Primary mediastinal large B-cell lymphoma
  3. RITUXIMAB [Suspect]
     Active Substance: RITUXIMAB
     Indication: Primary mediastinal large B-cell lymphoma
  4. DEXAMETHASONE [Suspect]
     Active Substance: DEXAMETHASONE
     Indication: Primary mediastinal large B-cell lymphoma
  5. CISPLATIN [Suspect]
     Active Substance: CISPLATIN
     Indication: Primary mediastinal large B-cell lymphoma

REACTIONS (1)
  - Erythema multiforme [Unknown]
